FAERS Safety Report 14914908 (Version 2)
Quarter: 2018Q2

REPORT INFORMATION
  Report Type: Spontaneous
  Country: US (occurrence: US)
  Receive Date: 20180518
  Receipt Date: 20180614
  Transmission Date: 20180711
  Serious: Yes (Hospitalization, Other)
  Sender: FDA-Public Use
  Company Number: US-PFIZER INC-2018205002

PATIENT
  Age: 54 Year
  Sex: Male
  Weight: 99.79 kg

DRUGS (1)
  1. ADVIL [Suspect]
     Active Substance: IBUPROFEN
     Dosage: UNK, AS NEEDED (ABOUT 20 ADVIL)
     Route: 048

REACTIONS (4)
  - Intentional overdose [Unknown]
  - Gastric disorder [Unknown]
  - Suicide attempt [Unknown]
  - Liver disorder [Unknown]
